FAERS Safety Report 25237395 (Version 1)
Quarter: 2025Q2

REPORT INFORMATION
  Report Type: Spontaneous
  Country: US (occurrence: US)
  Receive Date: 20250425
  Receipt Date: 20250425
  Transmission Date: 20250717
  Serious: Yes (Hospitalization, Other)
  Sender: ALEXION PHARMACEUTICALS
  Company Number: US-AstraZeneca-2024A066188

PATIENT
  Age: 68 Year
  Weight: 84 kg

DRUGS (26)
  1. OLAPARIB [Suspect]
     Active Substance: OLAPARIB
     Dosage: 300 MILLIGRAM, BID
  2. OLAPARIB [Suspect]
     Active Substance: OLAPARIB
     Dosage: 150 MILLIGRAM, BID
  3. OLAPARIB [Suspect]
     Active Substance: OLAPARIB
     Dosage: 300 MILLIGRAM, BID
  4. OLAPARIB [Suspect]
     Active Substance: OLAPARIB
     Dosage: 300 MILLIGRAM, BID
  5. OLAPARIB [Suspect]
     Active Substance: OLAPARIB
     Dosage: 300 MILLIGRAM, BID
  6. OLAPARIB [Suspect]
     Active Substance: OLAPARIB
     Dosage: 300 MILLIGRAM, BID
  7. OLAPARIB [Suspect]
     Active Substance: OLAPARIB
     Dosage: 150 MILLIGRAM, BID
  8. OLAPARIB [Suspect]
     Active Substance: OLAPARIB
     Dosage: 150 MILLIGRAM, BID
  9. AZD-1222 [Suspect]
     Active Substance: AZD-1222
  10. VUDALIMAB [Suspect]
     Active Substance: VUDALIMAB
     Indication: Prostate cancer
     Dosage: 10 MILLIGRAM/KILOGRAM, Q2W
  11. VUDALIMAB [Suspect]
     Active Substance: VUDALIMAB
     Dosage: 10 MILLIGRAM/KILOGRAM, Q2W
  12. VUDALIMAB [Suspect]
     Active Substance: VUDALIMAB
     Dosage: 10 MILLIGRAM/KILOGRAM, Q2W
  13. VUDALIMAB [Suspect]
     Active Substance: VUDALIMAB
     Dosage: 10 MILLIGRAM/KILOGRAM, Q2W
  14. VUDALIMAB [Suspect]
     Active Substance: VUDALIMAB
     Dosage: 10 MILLIGRAM/KILOGRAM, Q2W
  15. VUDALIMAB [Suspect]
     Active Substance: VUDALIMAB
     Dosage: 10 MILLIGRAM/KILOGRAM, Q2W
  16. VUDALIMAB [Suspect]
     Active Substance: VUDALIMAB
     Dosage: 10 MILLIGRAM/KILOGRAM, Q2W
  17. VUDALIMAB [Suspect]
     Active Substance: VUDALIMAB
     Dosage: 10 MILLIGRAM/KILOGRAM, Q2W
  18. VUDALIMAB [Suspect]
     Active Substance: VUDALIMAB
     Dosage: 10 MILLIGRAM/KILOGRAM, Q2W
  19. VUDALIMAB [Suspect]
     Active Substance: VUDALIMAB
     Dosage: 10 MILLIGRAM/KILOGRAM, Q2W
  20. VUDALIMAB [Suspect]
     Active Substance: VUDALIMAB
     Dosage: 10 MILLIGRAM/KILOGRAM, Q2W
  21. SITAGLIPTIN PHOSPHATE [Concomitant]
     Active Substance: SITAGLIPTIN PHOSPHATE
  22. ASPIRIN [Concomitant]
     Active Substance: ASPIRIN
  23. LEUPROLIDE ACETATE [Concomitant]
     Active Substance: LEUPROLIDE ACETATE
  24. FLUAD NOS [Concomitant]
     Active Substance: INFLUENZA VIRUS VACCINE
  25. HYDROCORTISONE [Concomitant]
     Active Substance: HYDROCORTISONE
  26. SODIUM CHLORIDE [Concomitant]
     Active Substance: SODIUM CHLORIDE

REACTIONS (10)
  - Hyperglycaemia [Recovered/Resolved]
  - Blood sodium decreased [Unknown]
  - Prostatic specific antigen abnormal [Unknown]
  - Glucose urine present [Unknown]
  - Oxygen saturation decreased [Unknown]
  - Anion gap decreased [Unknown]
  - Underdose [Unknown]
  - Abdominal pain [Unknown]
  - Constipation [Unknown]
  - Decreased appetite [Not Recovered/Not Resolved]
